FAERS Safety Report 8370944-7 (Version None)
Quarter: 2012Q2

REPORT INFORMATION
  Report Type: 
  Country: None (occurrence: None)
  Receive Date: 20120518
  Receipt Date: 20120516
  Transmission Date: 20120825
  Serious: No
  Sender: FDA-Public Use
  Company Number: US-PFIZER INC-2012119678

PATIENT
  Sex: Female

DRUGS (3)
  1. EFFEXOR XR [Suspect]
     Dosage: 75 MG, 1X/DAY
     Dates: start: 20120503, end: 20120501
  2. EFFEXOR XR [Suspect]
     Indication: DEPRESSION
     Dosage: 37.5 MG, 1X/DAY
     Dates: start: 20120502, end: 20120503
  3. EFFEXOR XR [Suspect]
     Dosage: 37.5 MG, 1X/DAY
     Dates: start: 20120501, end: 20120514

REACTIONS (3)
  - ANXIETY [None]
  - DRUG INTOLERANCE [None]
  - DEPRESSION [None]
